FAERS Safety Report 25859331 (Version 2)
Quarter: 2025Q4

REPORT INFORMATION
  Report Type: Spontaneous
  Country: US (occurrence: US)
  Receive Date: 20250929
  Receipt Date: 20251031
  Transmission Date: 20260118
  Serious: No
  Sender: MYLAN
  Company Number: US-MYLANLABS-2025M1080848

PATIENT
  Age: 49 Year
  Sex: Male

DRUGS (24)
  1. SERTRALINE HYDROCHLORIDE [Suspect]
     Active Substance: SERTRALINE HYDROCHLORIDE
     Indication: Mania
     Dosage: 0.5 DOSAGE FORM, UNK (TO TAKE HALF TABLET IN THE FIRST WEEK)
  2. SERTRALINE HYDROCHLORIDE [Suspect]
     Active Substance: SERTRALINE HYDROCHLORIDE
     Dosage: 0.5 DOSAGE FORM, UNK (TO TAKE HALF TABLET IN THE FIRST WEEK)
  3. SERTRALINE HYDROCHLORIDE [Suspect]
     Active Substance: SERTRALINE HYDROCHLORIDE
     Dosage: 0.5 DOSAGE FORM, UNK (TO TAKE HALF TABLET IN THE FIRST WEEK)
     Route: 065
  4. SERTRALINE HYDROCHLORIDE [Suspect]
     Active Substance: SERTRALINE HYDROCHLORIDE
     Dosage: 0.5 DOSAGE FORM, UNK (TO TAKE HALF TABLET IN THE FIRST WEEK)
     Route: 065
  5. SERTRALINE HYDROCHLORIDE [Suspect]
     Active Substance: SERTRALINE HYDROCHLORIDE
     Dosage: 25 MILLIGRAM, UNK (1 FULL TABLET)
  6. SERTRALINE HYDROCHLORIDE [Suspect]
     Active Substance: SERTRALINE HYDROCHLORIDE
     Dosage: 25 MILLIGRAM, UNK (1 FULL TABLET)
  7. SERTRALINE HYDROCHLORIDE [Suspect]
     Active Substance: SERTRALINE HYDROCHLORIDE
     Dosage: 25 MILLIGRAM, UNK (1 FULL TABLET)
     Route: 065
  8. SERTRALINE HYDROCHLORIDE [Suspect]
     Active Substance: SERTRALINE HYDROCHLORIDE
     Dosage: 25 MILLIGRAM, UNK (1 FULL TABLET)
     Route: 065
  9. LORBRENA [Concomitant]
     Active Substance: LORLATINIB
     Indication: Small cell lung cancer
     Dosage: 100 MILLIGRAM, QD (ONCE A DAY AS A TREATMENT)
     Dates: start: 202501
  10. LORBRENA [Concomitant]
     Active Substance: LORLATINIB
     Dosage: 100 MILLIGRAM, QD (ONCE A DAY AS A TREATMENT)
     Route: 065
     Dates: start: 202501
  11. LORBRENA [Concomitant]
     Active Substance: LORLATINIB
     Dosage: 100 MILLIGRAM, QD (ONCE A DAY AS A TREATMENT)
     Route: 065
     Dates: start: 202501
  12. LORBRENA [Concomitant]
     Active Substance: LORLATINIB
     Dosage: 100 MILLIGRAM, QD (ONCE A DAY AS A TREATMENT)
     Dates: start: 202501
  13. ELIQUIS [Concomitant]
     Active Substance: APIXABAN
     Dosage: UNK
  14. ELIQUIS [Concomitant]
     Active Substance: APIXABAN
     Dosage: UNK
     Route: 065
  15. ELIQUIS [Concomitant]
     Active Substance: APIXABAN
     Dosage: UNK
     Route: 065
  16. ELIQUIS [Concomitant]
     Active Substance: APIXABAN
     Dosage: UNK
  17. BUSPIRONE [Concomitant]
     Active Substance: BUSPIRONE HYDROCHLORIDE
     Indication: Mania
     Dosage: UNK
  18. BUSPIRONE [Concomitant]
     Active Substance: BUSPIRONE HYDROCHLORIDE
     Dosage: UNK
     Route: 065
  19. BUSPIRONE [Concomitant]
     Active Substance: BUSPIRONE HYDROCHLORIDE
     Dosage: UNK
     Route: 065
  20. BUSPIRONE [Concomitant]
     Active Substance: BUSPIRONE HYDROCHLORIDE
     Dosage: UNK
  21. PROPRANOLOL [Concomitant]
     Active Substance: PROPRANOLOL HYDROCHLORIDE
     Indication: Mania
     Dosage: UNK
  22. PROPRANOLOL [Concomitant]
     Active Substance: PROPRANOLOL HYDROCHLORIDE
     Dosage: UNK
     Route: 065
  23. PROPRANOLOL [Concomitant]
     Active Substance: PROPRANOLOL HYDROCHLORIDE
     Dosage: UNK
     Route: 065
  24. PROPRANOLOL [Concomitant]
     Active Substance: PROPRANOLOL HYDROCHLORIDE
     Dosage: UNK

REACTIONS (1)
  - Off label use [Unknown]
